FAERS Safety Report 22055942 (Version 1)
Quarter: 2023Q1

REPORT INFORMATION
  Report Type: Other
  Country: CN (occurrence: None)
  Receive Date: 20230302
  Receipt Date: 20230302
  Transmission Date: 20230418
  Serious: Yes (Other)
  Sender: FDA-Public Use
  Company Number: CN-ROCHE-3294735

PATIENT
  Age: 60 Year
  Sex: Female
  Weight: 55 kg

DRUGS (1)
  1. ALECENSA [Suspect]
     Active Substance: ALECTINIB HYDROCHLORIDE
     Indication: Lung neoplasm malignant
     Dosage: 150MG*56 CAPSULES*4 BOXES, CAPUSULES, 1 DF= 1 CAPSULE
     Route: 048
     Dates: start: 20200101

REACTIONS (13)
  - Metastases to bone [Unknown]
  - Constipation [Not Recovered/Not Resolved]
  - Heart rate abnormal [Not Recovered/Not Resolved]
  - Hypertension [Not Recovered/Not Resolved]
  - Decreased appetite [Unknown]
  - Heart rate decreased [Unknown]
  - Fat tissue increased [Unknown]
  - Nasal dryness [Unknown]
  - Asthenia [Unknown]
  - Dry throat [Unknown]
  - Transaminases increased [Unknown]
  - Blood bilirubin increased [Unknown]
  - Tumour marker increased [Unknown]
